FAERS Safety Report 9311776 (Version 2)
Quarter: 2013Q2

REPORT INFORMATION
  Report Type: Spontaneous
  Country: US (occurrence: US)
  Receive Date: 20130524
  Receipt Date: 20130524
  Transmission Date: 20140414
  Serious: Yes (Death)
  Sender: FDA-Public Use
  Company Number: US-RB-054169-13

PATIENT
  Age: 19 Year
  Sex: Male
  Weight: 85 kg

DRUGS (2)
  1. SUBOXONE FILM [Suspect]
     Indication: DRUG DEPENDENCE
     Route: 065
     Dates: start: 20120131
  2. CLORAZEPATE [Suspect]
     Indication: MENTAL DISORDER
     Route: 065
     Dates: start: 20120924

REACTIONS (8)
  - Off label use [Recovered/Resolved]
  - Gun shot wound [Fatal]
  - Completed suicide [Fatal]
  - Subarachnoid haemorrhage [None]
  - Skull fracture [None]
  - Skin discolouration [None]
  - Contusion [None]
  - Contusion [None]
